FAERS Safety Report 5824312-X (Version None)
Quarter: 2008Q3

REPORT INFORMATION
  Report Type: 
  Country: None (occurrence: None)
  Receive Date: 20080728
  Receipt Date: 20080724
  Transmission Date: 20090109
  Serious: Yes (Congenital Anomaly)
  Sender: FDA-Public Use
  Company Number: US-GILEAD-2008-0016575

PATIENT
  Sex: Male
  Weight: 3.904 kg

DRUGS (1)
  1. HEPSERA [Suspect]

REACTIONS (1)
  - UMBILICAL HERNIA [None]
